FAERS Safety Report 24533161 (Version 7)
Quarter: 2025Q3

REPORT INFORMATION
  Report Type: Report from Study
  Country: US (occurrence: US)
  Receive Date: 20241022
  Receipt Date: 20250912
  Transmission Date: 20251021
  Serious: Yes (Hospitalization, Other)
  Sender: UCB
  Company Number: US-UCBSA-2024051673

PATIENT
  Age: 4 Year
  Sex: Male
  Weight: 24 kg

DRUGS (17)
  1. FINTEPLA [Suspect]
     Active Substance: FENFLURAMINE
     Indication: Lennox-Gastaut syndrome
     Dosage: 2.1 MILLILITER, 2X/DAY (BID)
     Dates: start: 20220121
  2. FINTEPLA [Suspect]
     Active Substance: FENFLURAMINE
     Dosage: 2.1 MILLILITER, 2X/DAY (BID)
  3. FINTEPLA [Suspect]
     Active Substance: FENFLURAMINE
  4. FINTEPLA [Suspect]
     Active Substance: FENFLURAMINE
     Dosage: 2.1 MILLILITER, 2X/DAY (BID)
  5. EPIDIOLEX [Concomitant]
     Active Substance: CANNABIDIOL
     Indication: Seizure
  6. FAMOTIDINE [Concomitant]
     Active Substance: FAMOTIDINE
     Indication: Dyspepsia
  7. LEVOCARNITINE [Concomitant]
     Active Substance: LEVOCARNITINE
     Indication: Renal impairment
  8. VALPROIC ACID [Concomitant]
     Active Substance: VALPROIC ACID
     Indication: Seizure
  9. ONFI [Concomitant]
     Active Substance: CLOBAZAM
     Indication: Seizure
  10. BILASTINE [Concomitant]
     Active Substance: BILASTINE
     Indication: Seasonal allergy
  11. FYCOMPA [Concomitant]
     Active Substance: PERAMPANEL
     Indication: Seizure
  12. MONTELUKAST [Concomitant]
     Active Substance: MONTELUKAST
     Indication: Seasonal allergy
  13. LAMOTRIGINE [Concomitant]
     Active Substance: LAMOTRIGINE
     Indication: Seizure
  14. ALBUTEROL SULFATE [Concomitant]
     Active Substance: ALBUTEROL SULFATE
     Indication: Cough
  15. ALBUTEROL SULFATE [Concomitant]
     Active Substance: ALBUTEROL SULFATE
     Indication: Dyspnoea
  16. BUDESONIDE [Concomitant]
     Active Substance: BUDESONIDE
     Indication: Cough
  17. BUDESONIDE [Concomitant]
     Active Substance: BUDESONIDE
     Indication: Dyspnoea

REACTIONS (5)
  - Pneumonitis [Recovered/Resolved]
  - Illness [Recovered/Resolved]
  - Rhinovirus infection [Not Recovered/Not Resolved]
  - Tricuspid valve incompetence [Not Recovered/Not Resolved]
  - Immunodeficiency [Not Recovered/Not Resolved]

NARRATIVE: CASE EVENT DATE: 20241010
